FAERS Safety Report 23967098 (Version 3)
Quarter: 2024Q4

REPORT INFORMATION
  Report Type: Spontaneous
  Country: US (occurrence: US)
  Receive Date: 20240612
  Receipt Date: 20241018
  Transmission Date: 20250115
  Serious: Yes (Hospitalization)
  Sender: AMGEN
  Company Number: US-AMGEN-USASP2024113650

PATIENT
  Age: 1 Year
  Sex: Male

DRUGS (2)
  1. BUPHENYL [Suspect]
     Active Substance: SODIUM PHENYLBUTYRATE
     Indication: Ornithine transcarbamoylase deficiency
     Dosage: 1.5 GRAM, TID (3GM/TSP)
     Route: 048
     Dates: start: 202306
  2. BUPHENYL [Suspect]
     Active Substance: SODIUM PHENYLBUTYRATE
     Dosage: 2 GRAM, TID (3GM/TSP)
     Route: 048

REACTIONS (3)
  - Adverse drug reaction [Unknown]
  - Gastroenteritis viral [Recovered/Resolved]
  - Ornithine transcarbamoylase deficiency [Unknown]

NARRATIVE: CASE EVENT DATE: 20240101
